FAERS Safety Report 25255892 (Version 1)
Quarter: 2025Q2

REPORT INFORMATION
  Report Type: Spontaneous
  Country: CN (occurrence: CN)
  Receive Date: 20250430
  Receipt Date: 20250430
  Transmission Date: 20250716
  Serious: Yes (Hospitalization, Other)
  Sender: PFIZER
  Company Number: CN-PFIZER INC-PV202500049994

PATIENT
  Age: 60 Year
  Sex: Female
  Weight: 56 kg

DRUGS (3)
  1. ZYVOX [Suspect]
     Active Substance: LINEZOLID
     Indication: Infection prophylaxis
     Dosage: 600 MG, 2X/DAY
     Route: 048
     Dates: start: 20250416, end: 20250417
  2. SODIUM CHLORIDE [Concomitant]
     Active Substance: SODIUM CHLORIDE
     Indication: Vehicle solution use
     Dosage: 250 ML, 1X/DAY
     Route: 041
     Dates: start: 20250413, end: 20250417
  3. CASPOFUNGIN ACETATE [Concomitant]
     Active Substance: CASPOFUNGIN ACETATE
     Indication: Infection prophylaxis
     Dosage: 50 MG, 1X/DAY
     Route: 041
     Dates: start: 20250413, end: 20250417

REACTIONS (3)
  - Hepatic enzyme increased [Recovered/Resolved]
  - Drug-induced liver injury [Unknown]
  - Drug level increased [Unknown]

NARRATIVE: CASE EVENT DATE: 20250416
